FAERS Safety Report 21670366 (Version 1)
Quarter: 2022Q4

REPORT INFORMATION
  Report Type: Spontaneous
  Country: US (occurrence: US)
  Receive Date: 20221201
  Receipt Date: 20221201
  Transmission Date: 20230113
  Serious: No
  Sender: FDA-Public Use
  Company Number: US-SANOFI-01386018

PATIENT
  Age: 54 Year

DRUGS (2)
  1. DUPIXENT [Suspect]
     Active Substance: DUPILUMAB
     Indication: Nasal polyps
     Dosage: 300 MG QOW
     Route: 058
     Dates: start: 202206
  2. FASENRA [Concomitant]
     Active Substance: BENRALIZUMAB
     Indication: Asthma

REACTIONS (3)
  - Peripheral swelling [Unknown]
  - Pain [Unknown]
  - Oedema [Unknown]

NARRATIVE: CASE EVENT DATE: 20220101
